FAERS Safety Report 9661603 (Version 2)
Quarter: 2013Q4

REPORT INFORMATION
  Report Type: Spontaneous
  Country: US (occurrence: US)
  Receive Date: 20131031
  Receipt Date: 20131031
  Transmission Date: 20140711
  Serious: No
  Sender: FDA-Public Use
  Company Number: US-PURDUE-USA-2010-0052976

PATIENT
  Age: 50 Year
  Sex: Male

DRUGS (1)
  1. OXYCONTIN (NDA 22-272) [Suspect]
     Indication: PAIN
     Dosage: 40 MG, BID
     Dates: start: 201009, end: 20100909

REACTIONS (5)
  - Furuncle [Unknown]
  - Blister [Unknown]
  - Drug effect decreased [Recovered/Resolved]
  - Rash [Recovered/Resolved]
  - Fluid retention [Recovered/Resolved]
